FAERS Safety Report 8520196-X (Version None)
Quarter: 2012Q3

REPORT INFORMATION
  Report Type: 
  Country: None (occurrence: None)
  Receive Date: 20120719
  Receipt Date: 20120710
  Transmission Date: 20120928
  Serious: Yes (Hospitalization, Other)
  Sender: FDA-Public Use
  Company Number: NO-JNJFOC-20120400315

PATIENT
  Sex: Female
  Weight: 50 kg

DRUGS (10)
  1. REMICADE [Suspect]
     Indication: COLITIS ULCERATIVE
     Route: 042
     Dates: start: 20080908, end: 20090501
  2. REMICADE [Suspect]
     Route: 042
     Dates: start: 20120104
  3. HUMIRA [Concomitant]
     Indication: COLITIS ULCERATIVE
     Route: 065
  4. REMICADE [Suspect]
     Route: 042
     Dates: start: 20120110, end: 20120101
  5. REMICADE [Suspect]
     Indication: CROHN'S DISEASE
     Route: 042
     Dates: start: 20120104
  6. REMICADE [Suspect]
     Route: 042
     Dates: start: 20080908, end: 20090501
  7. SOLU-CORTEF [Concomitant]
     Indication: PREMEDICATION
     Route: 065
     Dates: start: 20120101
  8. ANTIHISTAMINES [Concomitant]
     Indication: PREMEDICATION
     Route: 065
     Dates: start: 20120101
  9. CETIRIZINE HCL [Concomitant]
     Indication: PREMEDICATION
     Route: 065
     Dates: start: 20120101
  10. REMICADE [Suspect]
     Route: 042
     Dates: start: 20120110, end: 20120101

REACTIONS (2)
  - ANAPHYLACTIC REACTION [None]
  - TYPE IV HYPERSENSITIVITY REACTION [None]
